FAERS Safety Report 25210587 (Version 2)
Quarter: 2025Q2

REPORT INFORMATION
  Report Type: Report from Study
  Country: US (occurrence: US)
  Receive Date: 20250417
  Receipt Date: 20250425
  Transmission Date: 20250717
  Serious: Yes (Death, Hospitalization, Other)
  Sender: PFIZER
  Company Number: US-PFIZER INC-PV202500043020

PATIENT
  Age: 57 Year
  Sex: Male

DRUGS (7)
  1. BRAFTOVI [Suspect]
     Active Substance: ENCORAFENIB
     Indication: Colon cancer
     Dosage: (4-75MG CAPSULES) BY MOUTH 1 TIME A DAY
     Route: 048
     Dates: start: 20250401
  2. BRAFTOVI [Suspect]
     Active Substance: ENCORAFENIB
     Dosage: 300MG DOSE BY MOUTH DAILY
     Route: 048
     Dates: start: 20250401
  3. ERBITUX [Concomitant]
     Active Substance: CETUXIMAB
  4. FLUOROURACIL [Concomitant]
     Active Substance: FLUOROURACIL
  5. FLUOROURACIL\LEUCOVORIN CALCIUM\OXALIPLATIN [Concomitant]
     Active Substance: FLUOROURACIL\LEUCOVORIN CALCIUM\OXALIPLATIN
  6. LEUCOVORIN [Concomitant]
     Active Substance: LEUCOVORIN\LEUCOVORIN CALCIUM
  7. OXALIPLATIN [Concomitant]
     Active Substance: OXALIPLATIN

REACTIONS (4)
  - Death [Fatal]
  - Thrombosis [Unknown]
  - Myocardial infarction [Unknown]
  - Product dose omission in error [Unknown]

NARRATIVE: CASE EVENT DATE: 20250405
